FAERS Safety Report 13357358 (Version 1)
Quarter: 2017Q1

REPORT INFORMATION
  Report Type: Spontaneous
  Country: US (occurrence: US)
  Receive Date: 20170322
  Receipt Date: 20170322
  Transmission Date: 20170429
  Serious: No
  Sender: FDA-Public Use
  Company Number: US-ENDO PHARMACEUTICALS INC-2016-007525

PATIENT
  Sex: Male
  Weight: 172.52 kg

DRUGS (2)
  1. OXYCODONE HCL 10MG [Suspect]
     Active Substance: OXYCODONE HYDROCHLORIDE
     Indication: ARTHRALGIA
     Route: 065
     Dates: start: 201412, end: 201609
  2. DICLOFENAC [Concomitant]
     Active Substance: DICLOFENAC
     Indication: ANALGESIC INTERVENTION SUPPORTIVE THERAPY

REACTIONS (2)
  - Euphoric mood [Unknown]
  - Drug effect decreased [Unknown]
